FAERS Safety Report 21298270 (Version 1)
Quarter: 2022Q3

REPORT INFORMATION
  Report Type: Spontaneous
  Country: DE (occurrence: DE)
  Receive Date: 20220906
  Receipt Date: 20220906
  Transmission Date: 20221027
  Serious: Yes (Hospitalization, Other)
  Sender: FDA-Public Use
  Company Number: DE-DSJP-DSE-2022-131759

PATIENT
  Sex: Female
  Weight: 82 kg

DRUGS (2)
  1. ENHERTU [Suspect]
     Active Substance: FAM-TRASTUZUMAB DERUXTECAN-NXKI
     Indication: Breast cancer
     Dosage: 442.8 MG, ONCE EVERY 3 WK
     Route: 041
     Dates: start: 20220310, end: 20220310
  2. ENHERTU [Suspect]
     Active Substance: FAM-TRASTUZUMAB DERUXTECAN-NXKI
     Indication: Metastases to central nervous system
     Dosage: 442.8 MG, ONCE EVERY 3 WK
     Route: 041
     Dates: start: 20220602, end: 20220602

REACTIONS (1)
  - Neurodegenerative disorder [Not Recovered/Not Resolved]

NARRATIVE: CASE EVENT DATE: 20220501
